FAERS Safety Report 5565568-0 (Version None)
Quarter: 2007Q4

REPORT INFORMATION
  Report Type: 
  Country: None (occurrence: None)
  Receive Date: 20071218
  Receipt Date: 20071207
  Transmission Date: 20080405
  Serious: Yes (Other)
  Sender: FDA-Public Use
  Company Number: US-PFIZER INC-2007103794

PATIENT
  Sex: Male
  Weight: 65.909 kg

DRUGS (2)
  1. VIAGRA [Suspect]
     Indication: ERECTILE DYSFUNCTION
     Dosage: TEXT:50 MG PRN
  2. XALATAN [Concomitant]

REACTIONS (1)
  - INGUINAL HERNIA [None]
